FAERS Safety Report 7555877-8 (Version None)
Quarter: 2011Q2

REPORT INFORMATION
  Report Type: 
  Country: None (occurrence: None)
  Receive Date: 20110618
  Receipt Date: 20110128
  Transmission Date: 20111010
  Serious: Yes (Hospitalization, Other)
  Sender: FDA-Public Use
  Company Number: US-BAYER-201040814NA

PATIENT
  Age: 17 Year
  Sex: Female
  Weight: 51.701 kg

DRUGS (10)
  1. NEXIUM [Concomitant]
  2. CLARINEX [Concomitant]
     Route: 048
  3. ACIPHEX [Concomitant]
     Dosage: 20 MG, QD
     Route: 048
  4. YAZ [Suspect]
     Indication: CONTRACEPTION
     Dosage: ONE MONTH SUPPLY OF SAMPLES IN 2007
     Route: 048
     Dates: start: 20070701, end: 20090901
  5. YAZ [Suspect]
     Indication: ACNE
  6. MIRALAX [Concomitant]
     Dosage: UNK
  7. ZYRTEC [Concomitant]
     Dosage: 10 MG, QD
     Route: 048
  8. DULCOLAX [Concomitant]
  9. PRILOSEC [Concomitant]
     Route: 048
  10. I.V. SOLUTIONS [Concomitant]
     Indication: SYNCOPE
     Dosage: UNK
     Dates: start: 20080601

REACTIONS (2)
  - CHOLECYSTITIS CHRONIC [None]
  - GALLBLADDER INJURY [None]
